FAERS Safety Report 10998580 (Version 2)
Quarter: 2015Q2

REPORT INFORMATION
  Report Type: Spontaneous
  Country: FR (occurrence: None)
  Receive Date: 20150406
  Receipt Date: 20150514
  Transmission Date: 20150821
  Serious: Yes (Hospitalization, Other)
  Sender: FDA-Public Use
  Company Number: 2015SCAL000112

PATIENT
  Age: 9 Year
  Sex: Male
  Weight: 25 kg

DRUGS (2)
  1. CLONIDINE HYDROCHLORIDE. [Suspect]
     Active Substance: CLONIDINE HYDROCHLORIDE
     Indication: PRODUCT USED FOR UNKNOWN INDICATION
  2. BETAXOLOL [Concomitant]
     Active Substance: BETAXOLOL

REACTIONS (6)
  - Bradycardia [None]
  - Accidental overdose [None]
  - Toxicity to various agents [None]
  - Miosis [None]
  - Somnolence [None]
  - Hypotension [None]
